FAERS Safety Report 6821187-7 (Version None)
Quarter: 2010Q3

REPORT INFORMATION
  Report Type: 
  Country: None (occurrence: None)
  Receive Date: 20100707
  Receipt Date: 20080303
  Transmission Date: 20110219
  Serious: No
  Sender: FDA-Public Use
  Company Number: US-PFIZER INC-2008009255

PATIENT
  Sex: Female
  Weight: 59.42 kg

DRUGS (3)
  1. ZOLOFT [Suspect]
     Indication: DEPRESSION
     Route: 048
     Dates: start: 19980210
  2. SYNTHROID [Concomitant]
  3. CYPROHEPTADINE HCL [Concomitant]

REACTIONS (1)
  - MYALGIA [None]
